FAERS Safety Report 6187882-0 (Version None)
Quarter: 2009Q2

REPORT INFORMATION
  Report Type: 
  Country: None (occurrence: None)
  Receive Date: 20090511
  Receipt Date: 20090511
  Transmission Date: 20091009
  Serious: Yes (Other)
  Sender: FDA-Public Use
  Company Number: None

PATIENT
  Age: 60 Year
  Sex: Male
  Weight: 123.3784 kg

DRUGS (9)
  1. VARENCICLINE [Suspect]
     Indication: TOBACCO USER
     Dosage: 1 MG PO BID
     Route: 048
     Dates: start: 20080601
  2. HYDROXYZINE [Concomitant]
  3. SIMVASTATIN [Concomitant]
  4. CITALOPRAM HYDROBROMIDE [Concomitant]
  5. PREGABALIN [Concomitant]
  6. IBUPROFEN [Concomitant]
  7. AMITRIPTLINE HYDROCHLORIDE TAB [Concomitant]
  8. FUROSEMIDE [Concomitant]
  9. LISINOPRIL [Concomitant]

REACTIONS (3)
  - DEPRESSION [None]
  - HOMICIDAL IDEATION [None]
  - SUICIDAL IDEATION [None]
